FAERS Safety Report 8814653 (Version 1)
Quarter: 2012Q4

REPORT INFORMATION
  Report Type: Spontaneous
  Country: US (occurrence: None)
  Receive Date: 20120926
  Receipt Date: 20120926
  Transmission Date: 20130627
  Serious: Yes (Death)
  Sender: FDA-Public Use
  Company Number: AMAG201203085

PATIENT
  Age: 85 Year
  Sex: Female

DRUGS (1)
  1. FERAHEME [Suspect]
     Indication: CANCER
     Route: 042
     Dates: start: 20120806, end: 20120806

REACTIONS (2)
  - Small intestine carcinoma metastatic [None]
  - Abdominal pain [None]
